FAERS Safety Report 4993451-8 (Version None)
Quarter: 2006Q2

REPORT INFORMATION
  Report Type: 
  Country: None (occurrence: None)
  Receive Date: 20060504
  Receipt Date: 20060504
  Transmission Date: 20061013
  Serious: Yes (Disabling)
  Sender: FDA-Public Use
  Company Number: None

PATIENT
  Age: 21 Year
  Sex: Female
  Weight: 102.9665 kg

DRUGS (1)
  1. METOCLOPRAMIDE INJECTION [Suspect]

REACTIONS (2)
  - LARYNGOSPASM [None]
  - STRIDOR [None]
